FAERS Safety Report 10878588 (Version 1)
Quarter: 2015Q1

REPORT INFORMATION
  Report Type: Spontaneous
  Country: US (occurrence: None)
  Receive Date: 20150224
  Receipt Date: 20150224
  Transmission Date: 20150721
  Serious: Yes (Disabling)
  Sender: FDA-Public Use
  Company Number: None

PATIENT
  Age: 69 Year
  Sex: Male
  Weight: 79.38 kg

DRUGS (14)
  1. LEVOFLOXACIN 750MG [Suspect]
     Active Substance: LEVOFLOXACIN
     Indication: SINUSITIS
     Dosage: ONE TABLET
     Route: 048
     Dates: start: 20120109, end: 20120118
  2. ASPIRIN. [Concomitant]
     Active Substance: ASPIRIN
  3. PRAVASTATIN [Concomitant]
     Active Substance: PRAVASTATIN\PRAVASTATIN SODIUM
  4. LORAZEPAM. [Concomitant]
     Active Substance: LORAZEPAM
  5. COENZYME Q10 [Concomitant]
     Active Substance: UBIDECARENONE
  6. VITAMIN D3 [Concomitant]
     Active Substance: CHOLECALCIFEROL
  7. MIRTAZAPINE. [Concomitant]
     Active Substance: MIRTAZAPINE
  8. CLONAZEPAM. [Concomitant]
     Active Substance: CLONAZEPAM
  9. AMANTADINE [Concomitant]
     Active Substance: AMANTADINE
  10. VITAMIN E [Concomitant]
     Active Substance: .ALPHA.-TOCOPHEROL
  11. FERROUS SULFATE [Concomitant]
     Active Substance: FERROUS SULFATE\FERROUS SULFATE, DRIED
  12. FISH OIL [Concomitant]
     Active Substance: FISH OIL
  13. VITAMIN C [Concomitant]
     Active Substance: ASCORBIC ACID
  14. MULTIPLE VITAMIN [Concomitant]
     Active Substance: VITAMINS

REACTIONS (7)
  - Rash [None]
  - Nervous system disorder [None]
  - Tremor [None]
  - Insomnia [None]
  - Anxiety [None]
  - Tendon pain [None]
  - Restlessness [None]

NARRATIVE: CASE EVENT DATE: 20120109
